FAERS Safety Report 24440751 (Version 2)
Quarter: 2024Q4

REPORT INFORMATION
  Report Type: Report from Study
  Country: CH (occurrence: CH)
  Receive Date: 20241016
  Receipt Date: 20241017
  Transmission Date: 20250115
  Serious: No
  Sender: ROCHE
  Company Number: CH-ROCHE-3246215

PATIENT
  Age: 1 Year
  Sex: Male
  Weight: 10.0 kg

DRUGS (30)
  1. EMICIZUMAB [Suspect]
     Active Substance: EMICIZUMAB
     Indication: Haemophilia A without inhibitors
     Dosage: IN DEC/2022, HE RECEIVED THE MOST RECENT DOSE OF EMICIZUMAB PRIOR TO FIRST EPISODE OF FEVER.
     Route: 058
     Dates: start: 20220609, end: 20220630
  2. EMICIZUMAB [Suspect]
     Active Substance: EMICIZUMAB
     Route: 058
     Dates: start: 20220707, end: 20221215
  3. EMICIZUMAB [Suspect]
     Active Substance: EMICIZUMAB
     Route: 058
     Dates: start: 20221222
  4. HAEMOCTIN [Concomitant]
     Dosage: 250 IU
     Route: 042
     Dates: start: 20220527, end: 20220530
  5. HAEMOCTIN [Concomitant]
     Route: 042
     Dates: start: 20230403, end: 20230403
  6. HAEMOCTIN [Concomitant]
     Route: 042
     Dates: start: 20230403, end: 20230403
  7. HAEMOCTIN [Concomitant]
     Route: 042
     Dates: start: 20230404, end: 20230406
  8. HAEMOCTIN [Concomitant]
     Route: 042
     Dates: start: 20230407, end: 20230412
  9. HAEMOCTIN [Concomitant]
     Route: 042
     Dates: start: 20230413, end: 20230417
  10. AMOXICILLIN\CLAVULANIC ACID [Concomitant]
     Active Substance: AMOXICILLIN\CLAVULANIC ACID
     Route: 042
     Dates: start: 20220527, end: 20220530
  11. AMOXICILLIN\CLAVULANIC ACID [Concomitant]
     Active Substance: AMOXICILLIN\CLAVULANIC ACID
     Route: 048
  12. AMOXICILLIN\CLAVULANIC ACID [Concomitant]
     Active Substance: AMOXICILLIN\CLAVULANIC ACID
     Route: 042
     Dates: start: 20220530, end: 20220606
  13. DORMICUM [Concomitant]
     Route: 045
     Dates: start: 20220527, end: 20220527
  14. DORMICUM [Concomitant]
     Route: 045
     Dates: start: 20220530, end: 20220530
  15. NALBUPHINE [Concomitant]
     Active Substance: NALBUPHINE
     Route: 042
  16. HAEMOCTIN [Concomitant]
     Dosage: SURGICAL OR INVASIVE PROCEDURES?- INTRAOPERATIV [2023-04-03?OTHER
     Route: 042
     Dates: start: 20230403, end: 20230403
  17. HAEMOCTIN [Concomitant]
     Dosage: SURGICAL OR INVASIVE PROCEDURES?- INTRAOPERATIV [2023-04-03?OTHER
     Route: 042
     Dates: start: 20230403, end: 20230403
  18. HAEMOCTIN [Concomitant]
     Dosage: SURGICAL OR INVASIVE PROCEDURES?- INTRAOPERATIV [2023-04-03?OTHER
     Route: 042
     Dates: start: 20230404, end: 20230406
  19. HAEMOCTIN [Concomitant]
     Dosage: SURGICAL OR INVASIVE PROCEDURES?- INTRAOPERATIV [2023-04-03?OTHER
     Route: 042
     Dates: start: 20230407, end: 20230412
  20. HAEMOCTIN [Concomitant]
     Dosage: SURGICAL OR INVASIVE PROCEDURES?- INTRAOPERATIV [2023-04-03?OTHER
     Route: 042
     Dates: start: 20230413, end: 20230417
  21. TRANEXAMIC ACID [Concomitant]
     Active Substance: TRANEXAMIC ACID
     Dosage: SURGICAL OR INVASIVE PROCEDURES?- INTRAOPERATIV [2023-04-03?OTHER (PLEASE SPECIFY)]
     Route: 042
     Dates: start: 20230403, end: 20230403
  22. TRANEXAMIC ACID [Concomitant]
     Active Substance: TRANEXAMIC ACID
     Dosage: SURGICAL OR INVASIVE PROCEDURES?- INTRAOPERATIV [2023-04-03?OTHER (PLEASE SPECIFY)]
     Route: 048
     Dates: start: 20230403, end: 20230417
  23. ALBUTEROL [Concomitant]
     Active Substance: ALBUTEROL
     Indication: Bronchitis
     Route: 055
     Dates: start: 20221230, end: 20230107
  24. ALBUTEROL [Concomitant]
     Active Substance: ALBUTEROL
     Route: 055
     Dates: start: 20221223, end: 20221230
  25. NEXIUM [Concomitant]
     Active Substance: ESOMEPRAZOLE MAGNESIUM
     Indication: Bronchitis
     Route: 048
     Dates: start: 20221230, end: 20230107
  26. NEXIUM [Concomitant]
     Active Substance: ESOMEPRAZOLE MAGNESIUM
     Route: 048
     Dates: start: 20221223, end: 20221230
  27. AZITHROMYCIN [Concomitant]
     Active Substance: AZITHROMYCIN
     Indication: Ear infection
     Route: 048
     Dates: start: 20221230, end: 20230101
  28. AZITHROMYCIN [Concomitant]
     Active Substance: AZITHROMYCIN
     Route: 048
     Dates: start: 20221223, end: 20221230
  29. HYALURONATE SODIUM [Concomitant]
     Active Substance: HYALURONATE SODIUM
     Indication: Conjunctivitis
     Route: 047
     Dates: start: 20230109, end: 20230113
  30. ACETAMINOPHEN [Concomitant]
     Active Substance: ACETAMINOPHEN
     Indication: Ear infection
     Route: 054
     Dates: start: 20230918, end: 20230918

REACTIONS (2)
  - Pyrexia [Recovered/Resolved]
  - Oral pain [Recovered/Resolved]

NARRATIVE: CASE EVENT DATE: 20221028
